FAERS Safety Report 16702051 (Version 1)
Quarter: 2019Q3

REPORT INFORMATION
  Report Type: Spontaneous
  Country: US (occurrence: US)
  Receive Date: 20190813
  Receipt Date: 20190813
  Transmission Date: 20191004
  Serious: Yes (Hospitalization, Disabling)
  Sender: FDA-Public Use
  Company Number: None

PATIENT
  Age: 49 Year
  Sex: Female
  Weight: 76.05 kg

DRUGS (1)
  1. CIPROFLOXACIN HCL 500MG [Suspect]
     Active Substance: CIPROFLOXACIN HYDROCHLORIDE
     Indication: URINARY TRACT INFECTION
     Dosage: ?          QUANTITY:2 TABLET(S);?
     Route: 048
     Dates: start: 20190212, end: 20190218

REACTIONS (11)
  - Palpitations [None]
  - Muscle spasms [None]
  - Anxiety [None]
  - Muscular weakness [None]
  - Paraesthesia [None]
  - Muscle atrophy [None]
  - Apparent death [None]
  - Fall [None]
  - Insomnia [None]
  - Muscle twitching [None]
  - Fatigue [None]

NARRATIVE: CASE EVENT DATE: 20190217
